FAERS Safety Report 22766935 (Version 3)
Quarter: 2023Q4

REPORT INFORMATION
  Report Type: Spontaneous
  Country: CA (occurrence: CA)
  Receive Date: 20230731
  Receipt Date: 20231002
  Transmission Date: 20240110
  Serious: Yes (Other)
  Sender: FDA-Public Use
  Company Number: CA-PFIZER INC-202201182530

PATIENT
  Age: 63 Year
  Sex: Male
  Weight: 116.8 kg

DRUGS (14)
  1. RUXIENCE [Suspect]
     Active Substance: RITUXIMAB-PVVR
     Indication: Rheumatoid arthritis
     Dosage: 1000 MG, DAY 1 AND DAY 15
     Route: 042
     Dates: start: 20220812, end: 20220826
  2. RUXIENCE [Suspect]
     Active Substance: RITUXIMAB-PVVR
     Dosage: 1000 MG, DAY 1 AND DAY 15
     Route: 042
     Dates: start: 20230313, end: 20230327
  3. RUXIENCE [Suspect]
     Active Substance: RITUXIMAB-PVVR
     Dosage: 1000 MG, DAY 1 AND DAY 15
     Route: 042
     Dates: start: 20230320
  4. RUXIENCE [Suspect]
     Active Substance: RITUXIMAB-PVVR
     Dosage: 1000 MG, DAY 1 AND DAY 15 (DAY 15)
     Route: 042
     Dates: start: 20230327
  5. ADVIL [Concomitant]
     Active Substance: IBUPROFEN
     Indication: Premedication
     Dosage: 400 MG, DAILY
  6. ADVIL [Concomitant]
     Active Substance: IBUPROFEN
     Dosage: 400 MG
     Dates: start: 20220826, end: 20220826
  7. ADVIL [Concomitant]
     Active Substance: IBUPROFEN
     Dosage: 400 MG
     Dates: start: 20230320, end: 20230320
  8. BENADRYL [Concomitant]
     Active Substance: DIPHENHYDRAMINE HYDROCHLORIDE
     Indication: Premedication
     Dosage: 50 MG
     Dates: start: 20220826, end: 20220826
  9. BENADRYL [Concomitant]
     Active Substance: DIPHENHYDRAMINE HYDROCHLORIDE
     Dosage: 50 MG
     Dates: start: 20230320, end: 20230320
  10. DIPHENHYDRAMINE [Concomitant]
     Active Substance: DIPHENHYDRAMINE
     Indication: Premedication
     Dosage: 50 MG
     Route: 042
     Dates: start: 20230327, end: 20230327
  11. METHYLPREDNISOLONE [Concomitant]
     Active Substance: METHYLPREDNISOLONE
     Indication: Premedication
     Dosage: 100 MG
     Dates: start: 20220826, end: 20220826
  12. METHYLPREDNISOLONE [Concomitant]
     Active Substance: METHYLPREDNISOLONE
     Dosage: 100 MG
     Dates: start: 20230320, end: 20230320
  13. METHYLPREDNISOLONE [Concomitant]
     Active Substance: METHYLPREDNISOLONE
     Dosage: 100 MG
     Route: 042
     Dates: start: 20230327, end: 20230327
  14. PREDNISONE [Concomitant]
     Active Substance: PREDNISONE
     Indication: Rheumatoid arthritis
     Dosage: 5 MG, 1X/DAY
     Dates: start: 202210

REACTIONS (4)
  - Rheumatoid arthritis [Unknown]
  - Off label use [Unknown]
  - Product use issue [Unknown]
  - Intentional product use issue [Unknown]

NARRATIVE: CASE EVENT DATE: 20230101
